FAERS Safety Report 11591373 (Version 2)
Quarter: 2017Q3

REPORT INFORMATION
  Report Type: Spontaneous
  Country: GB (occurrence: GB)
  Receive Date: 20151005
  Receipt Date: 20170720
  Transmission Date: 20171127
  Serious: Yes (Death, Life-Threatening, Hospitalization, Disabling, Other)
  Sender: FDA-Public Use
  Company Number: GB-MACLEODS PHARMACEUTICALS US LTD-MAC2015002031

PATIENT

DRUGS (11)
  1. CLOPIDOGREL [Suspect]
     Active Substance: CLOPIDOGREL BISULFATE
     Indication: ANTIPLATELET THERAPY
     Dosage: 300 MG, LOADING DOSE
     Route: 048
  2. ASPIRIN. [Suspect]
     Active Substance: ASPIRIN
     Dosage: 75 MG, UNK (MAINTAINENCE DOSE)
     Route: 065
  3. FUROSEMIDE. [Concomitant]
     Active Substance: FUROSEMIDE
     Indication: PULMONARY OEDEMA
     Dosage: 50 MG, BID
     Route: 042
  4. ASPIRIN. [Suspect]
     Active Substance: ASPIRIN
     Dosage: 150 MG, UNK (FOR THE FIRST WEEK)
     Route: 065
  5. ASPIRIN. [Suspect]
     Active Substance: ASPIRIN
     Dosage: 75 MG, UNK (A MINIMUM OF 12 MONTHS)
     Route: 065
  6. CLOPIDOGREL [Suspect]
     Active Substance: CLOPIDOGREL BISULFATE
     Dosage: 75 MG, UNK (MAINTAINENCE DOSE)
     Route: 065
  7. ASPIRIN. [Suspect]
     Active Substance: ASPIRIN
     Indication: ANTIPLATELET THERAPY
     Dosage: 300 MG,  LOADING DOSE
     Route: 048
  8. FONDAPARINUX [Concomitant]
     Active Substance: FONDAPARINUX
     Dosage: 2.5 MG, UNK (MAINTAINANCE DOSE)
     Route: 065
  9. CLOPIDOGREL [Suspect]
     Active Substance: CLOPIDOGREL BISULFATE
     Dosage: 75 MG, UNK (A MINIMUM OF 12 MONTHS)
     Route: 065
  10. CLOPIDOGREL [Suspect]
     Active Substance: CLOPIDOGREL BISULFATE
     Dosage: 150 MG, UNK (FOR THE FIRST WEEK)
     Route: 065
  11. FONDAPARINUX [Concomitant]
     Active Substance: FONDAPARINUX
     Indication: ANTICOAGULANT THERAPY
     Dosage: 2.5 MG, LOADING DOSE
     Route: 058

REACTIONS (10)
  - Extradural haematoma [Not Recovered/Not Resolved]
  - Hyperreflexia [Not Recovered/Not Resolved]
  - Decubitus ulcer [Fatal]
  - Muscular weakness [Not Recovered/Not Resolved]
  - Immobile [Not Recovered/Not Resolved]
  - Back pain [Not Recovered/Not Resolved]
  - Spinal cord compression [Not Recovered/Not Resolved]
  - Condition aggravated [Not Recovered/Not Resolved]
  - Sepsis [Fatal]
  - Sensory loss [Not Recovered/Not Resolved]
